FAERS Safety Report 5029192-0 (Version None)
Quarter: 2006Q2

REPORT INFORMATION
  Report Type: 
  Country: None (occurrence: None)
  Receive Date: 20060619
  Receipt Date: 20060612
  Transmission Date: 20061013
  Serious: Yes (Hospitalization)
  Sender: FDA-Public Use
  Company Number: US-JNJFOC-20060603583

PATIENT
  Sex: Female
  Weight: 68.04 kg

DRUGS (3)
  1. FENTANYL TRANSDERMAL SYSTEM [Suspect]
     Indication: PAIN
     Route: 062
  2. SYMBYAX [Concomitant]
     Indication: BIPOLAR DISORDER
     Dosage: 6 MG OLANZAPINE AND 25MG FLUOXETINE CAPSULE, 1 CAPSULE IN 24 HOURS ORALLY
     Route: 048
  3. XANAX [Concomitant]
     Indication: ANXIETY
     Route: 048

REACTIONS (4)
  - HEAD INJURY [None]
  - RIB FRACTURE [None]
  - ROAD TRAFFIC ACCIDENT [None]
  - SPINAL FRACTURE [None]
